FAERS Safety Report 6663619-3 (Version None)
Quarter: 2010Q2

REPORT INFORMATION
  Report Type: 
  Country: None (occurrence: None)
  Receive Date: 20100401
  Receipt Date: 20100329
  Transmission Date: 20101027
  Serious: Yes (Other)
  Sender: FDA-Public Use
  Company Number: JP-BAYER-201010515BYL

PATIENT
  Age: 80 Year
  Sex: Female
  Weight: 38 kg

DRUGS (7)
  1. NEXAVAR [Suspect]
     Indication: HEPATIC NEOPLASM MALIGNANT
     Dosage: UNIT DOSE: 200 MG
     Route: 048
     Dates: start: 20090811, end: 20091029
  2. CANDESARTAN CILEXETIL [Concomitant]
     Dosage: SINCE BEFORE ADMINISTRATION
     Route: 048
  3. CALBLOCK [Concomitant]
     Dosage: SINCE BEFORE ADMINISTRATION
     Route: 048
  4. GLIMICRON [Concomitant]
     Dosage: SINCE BEFORE ADMINISTRATION
     Route: 048
  5. PLETAL [Concomitant]
     Dosage: SINCE BEFORE ADMINISTRATION
     Route: 048
  6. BASEN [Concomitant]
     Dosage: SINCE BEFORE ADMINISTRATION
     Route: 048
  7. LASIX [Concomitant]
     Dosage: SINCE BEFORE ADMINISTRATION
     Route: 048

REACTIONS (4)
  - ASCITES [None]
  - DECREASED APPETITE [None]
  - LIVER DISORDER [None]
  - PALMAR-PLANTAR ERYTHRODYSAESTHESIA SYNDROME [None]
